FAERS Safety Report 20833642 (Version 2)
Quarter: 2022Q3

REPORT INFORMATION
  Report Type: Spontaneous
  Country: US (occurrence: US)
  Receive Date: 20220516
  Receipt Date: 20220720
  Transmission Date: 20221027
  Serious: No
  Sender: FDA-Public Use
  Company Number: US-BAYER-2022A069632

PATIENT
  Age: 82 Year
  Sex: Female

DRUGS (2)
  1. ADEMPAS [Suspect]
     Active Substance: RIOCIGUAT
     Indication: Cardiac disorder
     Dosage: 0.5 MG, TID
     Route: 048
  2. ADEMPAS [Suspect]
     Active Substance: RIOCIGUAT
     Indication: Cardiac disorder
     Dosage: 1.5 MG, TID
     Route: 048
     Dates: start: 20220504

REACTIONS (4)
  - Dizziness [Recovered/Resolved]
  - Off label use [None]
  - Dyspnoea [Recovering/Resolving]
  - COVID-19 [None]

NARRATIVE: CASE EVENT DATE: 20220504
